FAERS Safety Report 5859371-1 (Version None)
Quarter: 2008Q3

REPORT INFORMATION
  Report Type: 
  Country: None (occurrence: None)
  Receive Date: 20080826
  Receipt Date: 20080826
  Transmission Date: 20090109
  Serious: Yes (Hospitalization)
  Sender: FDA-Public Use
  Company Number: None

PATIENT
  Sex: Female
  Weight: 106 kg

DRUGS (5)
  1. METHOTREXATE [Suspect]
     Dosage: 2275 MG
     Dates: end: 20080226
  2. VINCRISTINE SULFATE [Suspect]
     Dosage: 2 MG
     Dates: end: 20080225
  3. LEUCOVORIN CALCIUM [Suspect]
     Dosage: 54610 MG
     Dates: end: 20080306
  4. MERCAPTOPURINE [Suspect]
     Dosage: 500 MG
     Dates: end: 20080228
  5. LEXAPRO [Concomitant]

REACTIONS (3)
  - INFECTION [None]
  - LEUKOENCEPHALOPATHY [None]
  - RENAL FAILURE ACUTE [None]
